FAERS Safety Report 7541028-2 (Version None)
Quarter: 2011Q2

REPORT INFORMATION
  Report Type: 
  Country: None (occurrence: None)
  Receive Date: 20110610
  Receipt Date: 20100624
  Transmission Date: 20111010
  Serious: No
  Sender: FDA-Public Use
  Company Number: A0866922A

PATIENT
  Age: 80 Year
  Sex: Male

DRUGS (2)
  1. PLAVIX [Concomitant]
  2. ALTABAX [Suspect]
     Dosage: 1APP TWICE PER DAY
     Route: 061
     Dates: start: 20100623, end: 20100624

REACTIONS (1)
  - BURNING SENSATION [None]
